FAERS Safety Report 17317057 (Version 1)
Quarter: 2020Q1

REPORT INFORMATION
  Report Type: Spontaneous
  Country: US (occurrence: US)
  Receive Date: 20200124
  Receipt Date: 20200124
  Transmission Date: 20200409
  Serious: Yes (Death)
  Sender: FDA-Public Use
  Company Number: US-ABBVIE-20K-163-3247283-00

PATIENT
  Age: 81 Year
  Sex: Male
  Weight: 65 kg

DRUGS (5)
  1. DECITABINE. [Suspect]
     Active Substance: DECITABINE
     Indication: IMPAIRED QUALITY OF LIFE
     Dosage: DOSE 20 MG/M 2, DAILY FOR 5 DAYS/ 28 DAY CYCLE
     Route: 042
     Dates: start: 20191021, end: 20200109
  2. VENETOCLAX. [Suspect]
     Active Substance: VENETOCLAX
     Route: 048
     Dates: start: 20200107, end: 20200107
  3. VENETOCLAX. [Suspect]
     Active Substance: VENETOCLAX
     Route: 048
     Dates: start: 20200108, end: 20200109
  4. HYDROXYUREA. [Suspect]
     Active Substance: HYDROXYUREA
     Indication: IMPAIRED QUALITY OF LIFE
     Dosage: 1000 MG TWICE A DAY BY ORAL
     Route: 065
     Dates: start: 20191227, end: 20200109
  5. VENETOCLAX. [Suspect]
     Active Substance: VENETOCLAX
     Indication: IMPAIRED QUALITY OF LIFE
     Route: 048
     Dates: start: 20200106, end: 20200106

REACTIONS (2)
  - Haemorrhage intracranial [Fatal]
  - Thrombocytopenia [Unknown]

NARRATIVE: CASE EVENT DATE: 20200109
